FAERS Safety Report 6966518-2 (Version None)
Quarter: 2010Q3

REPORT INFORMATION
  Report Type: 
  Country: None (occurrence: None)
  Receive Date: 20100906
  Receipt Date: 20100826
  Transmission Date: 20110219
  Serious: Yes (Hospitalization)
  Sender: FDA-Public Use
  Company Number: US-BIOGENIDEC-2010BI030092

PATIENT
  Age: 26 Year
  Sex: Male
  Weight: 77 kg

DRUGS (1)
  1. AVONEX [Suspect]
     Indication: MULTIPLE SCLEROSIS
     Route: 030
     Dates: start: 20100522, end: 20100801

REACTIONS (7)
  - ABASIA [None]
  - BALANCE DISORDER [None]
  - DEHYDRATION [None]
  - HEADACHE [None]
  - INFECTION [None]
  - MENTAL IMPAIRMENT [None]
  - PYREXIA [None]
